FAERS Safety Report 7742238-1 (Version None)
Quarter: 2011Q3

REPORT INFORMATION
  Report Type: 
  Country: None (occurrence: None)
  Receive Date: 20110901
  Receipt Date: 20110818
  Transmission Date: 20111222
  Serious: Yes (Other)
  Sender: FDA-Public Use
  Company Number: DSA_47441_2011

PATIENT
  Age: 75 Year
  Sex: Female

DRUGS (4)
  1. LEVOTHYROXINE SODIUM [Concomitant]
  2. ALVEDON [Concomitant]
  3. ENALAPRIL MALEATE [Suspect]
     Indication: ESSENTIAL HYPERTENSION
     Dosage: (5 MG QD ORAL)
     Route: 048
     Dates: start: 20110526, end: 20110627
  4. AMLODIPINE [Suspect]
     Indication: ESSENTIAL HYPERTENSION
     Dosage: (5 MG QD ORAL)
     Route: 048
     Dates: start: 20110630

REACTIONS (7)
  - PARAESTHESIA [None]
  - HEADACHE [None]
  - DEPRESSED MOOD [None]
  - COUGH [None]
  - ARTHRALGIA [None]
  - SUICIDAL IDEATION [None]
  - DRY MOUTH [None]
